FAERS Safety Report 13494793 (Version 1)
Quarter: 2017Q2

REPORT INFORMATION
  Report Type: Spontaneous
  Country: US (occurrence: US)
  Receive Date: 20170428
  Receipt Date: 20170428
  Transmission Date: 20170830
  Serious: No
  Sender: FDA-Public Use
  Company Number: US-PFIZER INC-2017181836

PATIENT

DRUGS (1)
  1. ADVIL [Suspect]
     Active Substance: IBUPROFEN
     Dosage: UNK

REACTIONS (14)
  - Feeling abnormal [Unknown]
  - Hormone level abnormal [Unknown]
  - Mood altered [Unknown]
  - Emotional disorder [Unknown]
  - Acne [Unknown]
  - Dizziness [Unknown]
  - Back pain [Unknown]
  - Nipple pain [Unknown]
  - Vomiting [Unknown]
  - Asthenia [Unknown]
  - Increased appetite [Unknown]
  - Fatigue [Unknown]
  - Weight increased [Unknown]
  - Dermatitis allergic [Unknown]
